FAERS Safety Report 8186982-3 (Version None)
Quarter: 2012Q1

REPORT INFORMATION
  Report Type: 
  Country: None (occurrence: None)
  Receive Date: 20120302
  Receipt Date: 20120222
  Transmission Date: 20120608
  Serious: Yes (Other)
  Sender: FDA-Public Use
  Company Number: 2012AP000484

PATIENT
  Age: 66 Year
  Sex: Male

DRUGS (4)
  1. IRBESARTAN [Concomitant]
  2. BISOPROLOL FUMARATE [Concomitant]
  3. FLECAINIDE ACETATE [Suspect]
     Indication: ARRHYTHMIA
     Dosage: 100 MG;BID
  4. HYDROCHLOROTHIAZIDE [Concomitant]

REACTIONS (2)
  - TOXIC NEUROPATHY [None]
  - PERIPHERAL SENSORY NEUROPATHY [None]
